FAERS Safety Report 11186356 (Version 3)
Quarter: 2015Q4

REPORT INFORMATION
  Report Type: Spontaneous
  Country: US (occurrence: US)
  Receive Date: 20150612
  Receipt Date: 20151001
  Transmission Date: 20160304
  Serious: Yes (Other)
  Sender: FDA-Public Use
  Company Number: US-ALLERGAN-1510890US

PATIENT
  Age: 76 Year
  Sex: Male
  Weight: 99.77 kg

DRUGS (1)
  1. LUMIGAN [Suspect]
     Active Substance: BIMATOPROST
     Indication: GLAUCOMA
     Dosage: UNK
     Route: 047

REACTIONS (1)
  - Renal cell carcinoma stage I [Recovered/Resolved]

NARRATIVE: CASE EVENT DATE: 20150507
